FAERS Safety Report 23550269 (Version 1)
Quarter: 2024Q1

REPORT INFORMATION
  Report Type: Spontaneous
  Country: US (occurrence: US)
  Receive Date: 20240221
  Receipt Date: 20240221
  Transmission Date: 20240410
  Serious: No
  Sender: FDA-Public Use
  Company Number: US-GALDERMA-US2024001177

PATIENT
  Age: 44 Year
  Sex: Male

DRUGS (1)
  1. DIFFERIN GEL [Suspect]
     Active Substance: ADAPALENE
     Indication: Acne
     Dosage: 1 DOSAGE FORM, QD
     Dates: start: 202312

REACTIONS (3)
  - Cyst [Recovering/Resolving]
  - Skin discolouration [Recovering/Resolving]
  - Dry skin [Recovered/Resolved]
